FAERS Safety Report 6944644-1 (Version None)
Quarter: 2010Q3

REPORT INFORMATION
  Report Type: 
  Country: None (occurrence: None)
  Receive Date: 20100827
  Receipt Date: 20100816
  Transmission Date: 20110219
  Serious: Yes (Hospitalization)
  Sender: FDA-Public Use
  Company Number: PHHY2010CA45232

PATIENT
  Sex: Female

DRUGS (7)
  1. CLOZARIL [Suspect]
     Indication: PARKINSON'S DISEASE
     Dosage: 12.5 MG, QD
     Route: 048
     Dates: start: 20100501
  2. LEVOCARB [Concomitant]
     Dosage: 1.5 TAB 6 X 1/DAY + 1 TAB QHS
     Route: 048
  3. ATORVASTATIN [Concomitant]
     Dosage: 20 MG DAILY
     Route: 048
  4. DOMPERIDONE [Concomitant]
     Dosage: 20 MG, TID
     Route: 048
  5. DONEPEZIL HCL [Concomitant]
     Dosage: 10 MG DAILY
     Route: 048
  6. FUROSEMIDE [Concomitant]
     Dosage: 40 MG DAILY
     Route: 048
  7. MIRTAZAPINE [Concomitant]
     Dosage: 15 MG, QHS
     Route: 048

REACTIONS (3)
  - FALL [None]
  - HIP FRACTURE [None]
  - SURGERY [None]
